FAERS Safety Report 16517310 (Version 1)
Quarter: 2019Q3

REPORT INFORMATION
  Report Type: Spontaneous
  Country: US (occurrence: US)
  Receive Date: 20190522
  Receipt Date: 20190522
  Transmission Date: 20191004
  Serious: Yes (Hospitalization)
  Sender: FDA-Public Use
  Company Number: None

PATIENT
  Age: 69 Year
  Sex: Female
  Weight: 113.4 kg

DRUGS (12)
  1. XARELTO [Concomitant]
     Active Substance: RIVAROXABAN
  2. METFORMIN [Concomitant]
     Active Substance: METFORMIN HYDROCHLORIDE
  3. IBUPROFEN, [Concomitant]
  4. TRAMADOL. [Concomitant]
     Active Substance: TRAMADOL
  5. TEMAZEPAM. [Concomitant]
     Active Substance: TEMAZEPAM
  6. ENALAPRIL [Concomitant]
     Active Substance: ENALAPRIL
  7. OXYCODONE [Concomitant]
     Active Substance: OXYCODONE
  8. VOTRIENT [Suspect]
     Active Substance: PAZOPANIB HYDROCHLORIDE
     Indication: MALIGNANT CONNECTIVE TISSUE NEOPLASM
     Route: 048
  9. ELIQUIS [Concomitant]
     Active Substance: APIXABAN
  10. HYSROCHLOROTHIAZIDE [Concomitant]
  11. TRIAMCINOLONE, [Concomitant]
  12. PROCHLORPERACINE [Concomitant]

REACTIONS (1)
  - Thrombosis [None]
